FAERS Safety Report 14279368 (Version 5)
Quarter: 2018Q2

REPORT INFORMATION
  Report Type: Report from Study
  Country: BR (occurrence: BR)
  Receive Date: 20171213
  Receipt Date: 20180515
  Transmission Date: 20180711
  Serious: Yes (Other)
  Sender: FDA-Public Use
  Company Number: BR-ROCHE-2009883

PATIENT
  Sex: Female
  Weight: 65 kg

DRUGS (19)
  1. AVAMYS [Concomitant]
     Active Substance: FLUTICASONE FUROATE
     Indication: ASTHMA
     Dosage: (SINCE TWO YEARS AND A HALF)
     Route: 045
  2. CLENIL A [Concomitant]
     Active Substance: BECLOMETHASONE DIPROPIONATE
     Indication: ASTHMA
  3. CLONAZEPAM. [Concomitant]
     Active Substance: CLONAZEPAM
     Indication: NERVOUSNESS
     Route: 048
     Dates: start: 201506
  4. XOLAIR [Suspect]
     Active Substance: OMALIZUMAB
     Route: 058
     Dates: start: 20150904
  5. CLENIL A [Concomitant]
     Active Substance: BECLOMETHASONE DIPROPIONATE
     Indication: PRODUCT USED FOR UNKNOWN INDICATION
     Dosage: QD (8 AMPOULES PER DAY)
     Route: 055
     Dates: start: 201506
  6. XOLAIR [Suspect]
     Active Substance: OMALIZUMAB
     Route: 058
     Dates: start: 20170805
  7. XOLAIR [Suspect]
     Active Substance: OMALIZUMAB
     Route: 058
     Dates: start: 20170928
  8. XOLAIR [Suspect]
     Active Substance: OMALIZUMAB
     Route: 058
     Dates: start: 20180402
  9. FLUIBRON [Concomitant]
     Active Substance: AMBROXOL HYDROCHLORIDE
     Indication: ASTHMA
     Route: 055
     Dates: start: 2015
  10. SERETIDE [Concomitant]
     Active Substance: FLUTICASONE PROPIONATE\SALMETEROL XINAFOATE
     Indication: ASTHMA
     Dosage: (SINCE 2 YEARS AND 7 MONTHS)
     Route: 055
     Dates: start: 201506
  11. SERETIDE [Concomitant]
     Active Substance: FLUTICASONE PROPIONATE\SALMETEROL XINAFOATE
     Dosage: 15 BOTTLES PER MONTH
     Route: 055
  12. MONTELAIR [Concomitant]
     Active Substance: MONTELUKAST SODIUM
     Indication: ASTHMA
     Route: 048
     Dates: start: 201506
  13. XOLAIR [Suspect]
     Active Substance: OMALIZUMAB
     Indication: ASTHMA
     Dosage: 1 APPLICATION/ 3 AMPOULES EVERY 15 DAYS
     Route: 058
     Dates: start: 201509
  14. XOLAIR [Suspect]
     Active Substance: OMALIZUMAB
     Route: 058
     Dates: start: 201507
  15. SINGULAIR [Concomitant]
     Active Substance: MONTELUKAST SODIUM
     Indication: ASTHMA
     Dosage: (SINCE 2 YEARS 7 MONTHS)
     Route: 048
  16. DESALEX [Concomitant]
     Active Substance: DESLORATADINE
     Indication: ASTHMA
     Dosage: (SINCE 2 YEARS AND A HALF)
     Route: 048
     Dates: start: 201506
  17. FLUIBRON [Concomitant]
     Active Substance: AMBROXOL HYDROCHLORIDE
     Indication: PRODUCT USED FOR UNKNOWN INDICATION
     Dosage: QD (8 AMPOULES PER DAY)
     Route: 055
     Dates: start: 201506
  18. SERETIDE [Concomitant]
     Active Substance: FLUTICASONE PROPIONATE\SALMETEROL XINAFOATE
     Route: 065
  19. VISKEN [Concomitant]
     Active Substance: PINDOLOL
     Indication: ASTHMA
     Route: 048
     Dates: start: 2015

REACTIONS (14)
  - Cough [Recovering/Resolving]
  - Oxygen saturation decreased [Recovering/Resolving]
  - Nausea [Unknown]
  - Alopecia [Not Recovered/Not Resolved]
  - Endometriosis [Recovering/Resolving]
  - Pain [Unknown]
  - Asthma [Recovering/Resolving]
  - General physical health deterioration [Recovering/Resolving]
  - Headache [Recovered/Resolved]
  - Vitamin D decreased [Not Recovered/Not Resolved]
  - Dyspnoea [Recovering/Resolving]
  - Asthmatic crisis [Recovered/Resolved]
  - Vomiting [Recovered/Resolved]
  - Pain of skin [Not Recovered/Not Resolved]
